FAERS Safety Report 25149280 (Version 1)
Quarter: 2025Q2

REPORT INFORMATION
  Report Type: Spontaneous
  Country: JP (occurrence: JP)
  Receive Date: 20250402
  Receipt Date: 20250402
  Transmission Date: 20250716
  Serious: Yes (Other)
  Sender: MACLEODS
  Company Number: JP-MLMSERVICE-20250317-PI444440-00246-3

PATIENT

DRUGS (4)
  1. OLANZAPINE [Suspect]
     Active Substance: OLANZAPINE
     Indication: Mania
     Route: 030
  2. OLANZAPINE [Suspect]
     Active Substance: OLANZAPINE
     Dosage: FROM THE SECOND DAY OF HOSPITALIZATION RECEIVED ORALLY; INCREASING OLANZAPINE DOSAGE TO 20MG/DAY
     Route: 048
  3. BUDESONIDE [Concomitant]
     Active Substance: BUDESONIDE
  4. FORMOTEROL FUMARATE [Concomitant]
     Active Substance: FORMOTEROL FUMARATE

REACTIONS (2)
  - Hyperprolactinaemia [Recovering/Resolving]
  - Amenorrhoea [Unknown]
